FAERS Safety Report 8458315 (Version 2)
Quarter: 2013Q3

REPORT INFORMATION
  Report Type: Report from Study
  Country: MX (occurrence: MX)
  Receive Date: 20120314
  Receipt Date: 20130711
  Transmission Date: 20140515
  Serious: Yes (Other)
  Sender: FDA-Public Use
  Company Number: PHHY2012MX021560

PATIENT
  Age: 86 Year
  Sex: Female

DRUGS (1)
  1. EXFORGE [Suspect]
     Indication: HYPERTENSION
     Dosage: 1 DF (160 MG VALS/10 MG AMLO) ONCE A DAY
     Route: 048
     Dates: start: 201110, end: 201202

REACTIONS (2)
  - Anaemia [Recovered/Resolved]
  - Local swelling [Recovered/Resolved]
